FAERS Safety Report 17201769 (Version 1)
Quarter: 2019Q4

REPORT INFORMATION
  Report Type: Spontaneous
  Country: US (occurrence: US)
  Receive Date: 20191203
  Receipt Date: 20191203
  Transmission Date: 20200122
  Serious: Yes (Hospitalization)
  Sender: FDA-Public Use
  Company Number: None

PATIENT
  Age: 36 Year
  Sex: Female
  Weight: 58.97 kg

DRUGS (4)
  1. ZICAM (HOMEOPATHICS) [Suspect]
     Active Substance: HOMEOPATHICS
     Indication: NASOPHARYNGITIS
     Dosage: ?          QUANTITY:15 ML MILLILITRE(S);?
     Route: 045
     Dates: start: 20191117, end: 20191119
  2. MAGNESIUM MALATE. [Concomitant]
     Active Substance: MAGNESIUM MALATE
  3. VITAMIN C [Concomitant]
     Active Substance: ASCORBIC ACID
  4. CBD [Concomitant]
     Active Substance: CANNABIDIOL

REACTIONS (4)
  - Head discomfort [None]
  - Anxiety [None]
  - Stress [None]
  - Tremor [None]

NARRATIVE: CASE EVENT DATE: 20191117
